APPROVED DRUG PRODUCT: ANZEMET
Active Ingredient: DOLASETRON MESYLATE
Strength: 50MG
Dosage Form/Route: TABLET;ORAL
Application: N020623 | Product #001
Applicant: VALIDUS PHARMACEUTICALS LLC
Approved: Sep 11, 1997 | RLD: Yes | RS: No | Type: DISCN